FAERS Safety Report 8268667-8 (Version None)
Quarter: 2012Q2

REPORT INFORMATION
  Report Type: 
  Country: None (occurrence: None)
  Receive Date: 20120409
  Receipt Date: 20120328
  Transmission Date: 20120825
  Serious: Yes (Other)
  Sender: FDA-Public Use
  Company Number: JP-BRISTOL-MYERS SQUIBB COMPANY-16499311

PATIENT
  Age: 69 Year
  Sex: Female

DRUGS (1)
  1. MITOMYCIN [Suspect]
     Indication: PTERYGIUM OPERATION
     Dosage: 1DF=0.04 PERCENT
     Dates: start: 20100421

REACTIONS (1)
  - SCLERAL THINNING [None]
